FAERS Safety Report 11080406 (Version 2)
Quarter: 2015Q2

REPORT INFORMATION
  Report Type: Spontaneous
  Country: US (occurrence: US)
  Receive Date: 20150430
  Receipt Date: 20150610
  Transmission Date: 20150821
  Serious: Yes (Other)
  Sender: FDA-Public Use
  Company Number: US-ALLERGAN-1507571US

PATIENT
  Age: 88 Year
  Sex: Female

DRUGS (2)
  1. RESTASIS [Suspect]
     Active Substance: CYCLOSPORINE
     Indication: DRY EYE
     Dosage: 1 DROP INTO EACH EYE TWICE DAILY 12
     Route: 047
  2. OTC EYE LUBRICATING EYE DROP [Concomitant]
     Indication: DRY EYE

REACTIONS (4)
  - Arthropathy [Not Recovered/Not Resolved]
  - Wrong technique in drug usage process [Unknown]
  - Accidental exposure to product [Unknown]
  - Hip fracture [Not Recovered/Not Resolved]
